FAERS Safety Report 24912824 (Version 2)
Quarter: 2025Q1

REPORT INFORMATION
  Report Type: Report from Study
  Country: US (occurrence: US)
  Receive Date: 20250131
  Receipt Date: 20250318
  Transmission Date: 20250408
  Serious: Yes (Other)
  Sender: ABBVIE
  Company Number: US-ABBVIE-6106557

PATIENT
  Sex: Male

DRUGS (1)
  1. SKYRIZI [Suspect]
     Active Substance: RISANKIZUMAB-RZAA
     Indication: Product used for unknown indication
     Route: 058
     Dates: start: 20230913

REACTIONS (5)
  - Hip fracture [Recovered/Resolved]
  - Fall [Unknown]
  - Road traffic accident [Unknown]
  - Haematoma [Unknown]
  - Staphylococcal infection [Unknown]
